FAERS Safety Report 9710723 (Version 2)
Quarter: 2013Q4

REPORT INFORMATION
  Report Type: Spontaneous
  Country: US (occurrence: US)
  Receive Date: 20131126
  Receipt Date: 20131126
  Transmission Date: 20140711
  Serious: No
  Sender: FDA-Public Use
  Company Number: US-BRISTOL-MYERS SQUIBB COMPANY-18952234

PATIENT
  Age: 77 Year
  Sex: Female
  Weight: 106.57 kg

DRUGS (3)
  1. BYETTA PEN DISPOSABLE [Suspect]
     Indication: TYPE 2 DIABETES MELLITUS
     Dates: start: 20130528
  2. BENICAR [Concomitant]
  3. METFORMIN [Concomitant]

REACTIONS (1)
  - Drug administration error [Recovered/Resolved]
